FAERS Safety Report 7471152-4 (Version None)
Quarter: 2011Q2

REPORT INFORMATION
  Report Type: 
  Country: None (occurrence: None)
  Receive Date: 20110510
  Receipt Date: 20110429
  Transmission Date: 20111010
  Serious: Yes (Other)
  Sender: FDA-Public Use
  Company Number: IT-TYCO HEALTHCARE/MALLINCKRODT-T201100931

PATIENT
  Age: 48 Year
  Sex: Female

DRUGS (3)
  1. EXALGO [Suspect]
     Dosage: 168 MG (21 TABLETS) AT ONCE
     Route: 048
  2. LORAZEPAM [Suspect]
     Dosage: 10 MG (10 TABLETS) AT ONCE
     Route: 048
  3. VENLAFAXINE [Suspect]
     Dosage: 750 MG (10 TABLETS) AT ONCE
     Route: 048

REACTIONS (6)
  - SOPOR [None]
  - MULTIPLE DRUG OVERDOSE INTENTIONAL [None]
  - SELF INJURIOUS BEHAVIOUR [None]
  - HYPOTENSION [None]
  - METABOLIC ACIDOSIS [None]
  - AGITATION [None]
